FAERS Safety Report 18176395 (Version 6)
Quarter: 2021Q4

REPORT INFORMATION
  Report Type: Spontaneous
  Country: US (occurrence: US)
  Receive Date: 20200820
  Receipt Date: 20211221
  Transmission Date: 20220303
  Serious: No
  Sender: FDA-Public Use
  Company Number: US-PFIZER INC-2019258467

PATIENT
  Age: 70 Year
  Sex: Female
  Weight: 73.03 kg

DRUGS (5)
  1. PREMARIN [Suspect]
     Active Substance: ESTROGENS, CONJUGATED
     Indication: Urinary tract infection
     Dosage: 0.5 G, THREE TIMES A WEEK (PV USE 3 X PER WEEK)
     Route: 067
  2. PREMARIN [Suspect]
     Active Substance: ESTROGENS, CONJUGATED
     Indication: Oestrogen deficiency
     Dosage: UNK [MON, WED+ FRI- VAG]
     Route: 067
  3. PREMARIN [Suspect]
     Active Substance: ESTROGENS, CONJUGATED
     Dosage: 0.5 G, THREE TIMES WEEKLY (USE 0.5G THREE TIMES WEEKLY MON AND WED AND FRI BY VAGINA)
     Route: 067
  4. PREMARIN [Suspect]
     Active Substance: ESTROGENS, CONJUGATED
     Dosage: 0.5 MG, (QUANTITY FOR 90 DAYS: 0.5 MG PV, 3X PER WEEK)
     Route: 067
  5. PREMARIN [Suspect]
     Active Substance: ESTROGENS, CONJUGATED
     Dosage: 0.65 MG (APPLIED THREE TIMES PER WEEK)
     Route: 067

REACTIONS (4)
  - Urinary tract infection [Unknown]
  - Off label use [Unknown]
  - Poor quality product administered [Unknown]
  - Product complaint [Unknown]
